FAERS Safety Report 6007261-6 (Version None)
Quarter: 2008Q4

REPORT INFORMATION
  Report Type: 
  Country: None (occurrence: None)
  Receive Date: 20081217
  Receipt Date: 20080205
  Transmission Date: 20090506
  Serious: No
  Sender: FDA-Public Use
  Company Number: US-ASTRAZENECA-2008UW02431

PATIENT
  Age: 51 Year
  Sex: Female

DRUGS (9)
  1. CRESTOR [Suspect]
     Route: 048
     Dates: start: 20070730
  2. NEXIUM [Concomitant]
  3. BENZAPRIL [Concomitant]
  4. IBUPROFEN [Concomitant]
  5. TYLENOL (CAPLET) [Concomitant]
  6. LYRICA [Concomitant]
  7. ADVAIR DISKUS 100/50 [Concomitant]
  8. SINGULAIR [Concomitant]
  9. LEXAPRO [Concomitant]

REACTIONS (1)
  - DYSPEPSIA [None]
